FAERS Safety Report 5849514-8 (Version None)
Quarter: 2008Q3

REPORT INFORMATION
  Report Type: 
  Country: None (occurrence: None)
  Receive Date: 20080819
  Receipt Date: 20080815
  Transmission Date: 20090109
  Serious: Yes (Life-Threatening, Disabling, Other)
  Sender: FDA-Public Use
  Company Number: A0742866A

PATIENT
  Age: 79 Year
  Sex: Female

DRUGS (10)
  1. ADVAIR DISKUS 100/50 [Suspect]
     Indication: ASTHMA
     Dosage: 1PUFF TWICE PER DAY
     Route: 055
     Dates: start: 20041115, end: 20080101
  2. CENTRUM SILVER [Concomitant]
  3. ASPIRIN [Concomitant]
  4. DURAGESIC-100 [Concomitant]
  5. COZAAR [Concomitant]
  6. PREVACID [Concomitant]
  7. LASIX [Concomitant]
  8. ZOLOFT [Concomitant]
  9. SINGULAIR [Concomitant]
  10. ALBUTEROL [Concomitant]

REACTIONS (2)
  - ASTHMA [None]
  - CANDIDIASIS [None]
